FAERS Safety Report 21968018 (Version 2)
Quarter: 2024Q2

REPORT INFORMATION
  Report Type: Spontaneous
  Country: JP (occurrence: JP)
  Receive Date: 20230208
  Receipt Date: 20240618
  Transmission Date: 20240716
  Serious: Yes (Hospitalization, Other)
  Sender: FDA-Public Use
  Company Number: JP-MSD-M2023-04203

PATIENT
  Age: 77 Year
  Sex: Male

DRUGS (12)
  1. KEYTRUDA [Suspect]
     Active Substance: PEMBROLIZUMAB
     Indication: Clear cell renal cell carcinoma
     Dosage: 200 MILLIGRAM, Q3W
     Route: 041
  2. LENVATINIB MESYLATE [Concomitant]
     Active Substance: LENVATINIB MESYLATE
     Indication: Clear cell renal cell carcinoma
     Dosage: 20 MILLIGRAM
     Route: 048
  3. LENVATINIB MESYLATE [Concomitant]
     Active Substance: LENVATINIB MESYLATE
     Dosage: 14 MILLIGRAM
     Route: 048
  4. LENVATINIB MESYLATE [Concomitant]
     Active Substance: LENVATINIB MESYLATE
     Dosage: 10 MILLIGRAM
     Route: 048
  5. LENVATINIB MESYLATE [Concomitant]
     Active Substance: LENVATINIB MESYLATE
     Dosage: 4 MILLIGRAM
     Route: 048
  6. NAPROXEN [Concomitant]
     Active Substance: NAPROXEN
     Dosage: 300 MILLIGRAM
     Route: 065
  7. NAPROXEN [Concomitant]
     Active Substance: NAPROXEN
     Dosage: 600 MILLIGRAM
     Route: 065
  8. NAPROXEN [Concomitant]
     Active Substance: NAPROXEN
     Dosage: 300 MILLIGRAM
     Route: 065
  9. NAPROXEN [Concomitant]
     Active Substance: NAPROXEN
     Dosage: 200 MILLIGRAM
     Route: 065
  10. LEVOTHYROXINE SODIUM [Concomitant]
     Active Substance: LEVOTHYROXINE SODIUM
     Dosage: 25 MICROGRAM
     Route: 065
  11. LEVOTHYROXINE SODIUM [Concomitant]
     Active Substance: LEVOTHYROXINE SODIUM
     Dosage: 50 MICROGRAM
     Route: 065
  12. LEVOTHYROXINE SODIUM [Concomitant]
     Active Substance: LEVOTHYROXINE SODIUM
     Dosage: 100 MICROGRAM
     Route: 065

REACTIONS (8)
  - Delirium [Unknown]
  - Pyrexia [Unknown]
  - Decreased appetite [Unknown]
  - C-reactive protein increased [Unknown]
  - Blood thyroid stimulating hormone increased [Unknown]
  - Hypertension [Unknown]
  - Palmar-plantar erythrodysaesthesia syndrome [Unknown]
  - Proteinuria [Unknown]
